FAERS Safety Report 21888140 (Version 5)
Quarter: 2023Q1

REPORT INFORMATION
  Report Type: Spontaneous
  Country: ES (occurrence: ES)
  Receive Date: 20230120
  Receipt Date: 20230309
  Transmission Date: 20230418
  Serious: Yes (Death, Hospitalization, Other)
  Sender: FDA-Public Use
  Company Number: ES-ABBVIE-4272498

PATIENT
  Age: 62 Year
  Sex: Male

DRUGS (5)
  1. UPADACITINIB [Suspect]
     Active Substance: UPADACITINIB
     Indication: Colitis ulcerative
     Route: 048
     Dates: start: 202102
  2. UPADACITINIB [Suspect]
     Active Substance: UPADACITINIB
     Indication: Colitis ulcerative
     Route: 048
     Dates: start: 202205
  3. MESALAMINE [Concomitant]
     Active Substance: MESALAMINE
     Indication: Product used for unknown indication
     Route: 048
  4. MESALAMINE [Concomitant]
     Active Substance: MESALAMINE
     Indication: Product used for unknown indication
     Route: 054
  5. SULFAMETHOXAZOLE\TRIMETHOPRIM [Concomitant]
     Active Substance: SULFAMETHOXAZOLE\TRIMETHOPRIM
     Indication: Product used for unknown indication
     Route: 065
     Dates: start: 202205

REACTIONS (11)
  - Hepatic failure [Fatal]
  - Spontaneous bacterial peritonitis [Fatal]
  - Pneumonia [Unknown]
  - Off label use [Unknown]
  - Alcoholic liver disease [Not Recovered/Not Resolved]
  - Hepatorenal syndrome [Fatal]
  - Pneumocystis jirovecii pneumonia [Unknown]
  - Hepatitis B reactivation [Fatal]
  - Atypical pneumonia [Unknown]
  - Liver disorder [Unknown]
  - Cirrhosis alcoholic [Not Recovered/Not Resolved]
